FAERS Safety Report 9913095 (Version 1)
Quarter: 2014Q1

REPORT INFORMATION
  Report Type: Spontaneous
  Country: US (occurrence: None)
  Receive Date: 20140218
  Receipt Date: 20140218
  Transmission Date: 20141002
  Serious: No
  Sender: FDA-Public Use
  Company Number: None

PATIENT
  Sex: Female

DRUGS (7)
  1. CYMBALTA [Suspect]
     Indication: DEPRESSION
     Dosage: 30 T DAILY BY MOUTH
     Route: 048
     Dates: start: 20140108, end: 20140124
  2. CYMBALTA [Suspect]
     Indication: AFFECTIVE DISORDER
     Dosage: 30 T DAILY BY MOUTH
     Route: 048
     Dates: start: 20140108, end: 20140124
  3. ABILIFY [Concomitant]
  4. KLONOPIN [Concomitant]
  5. AMBIEN [Concomitant]
  6. VISTARIL [Concomitant]
  7. CYMBALTA [Concomitant]

REACTIONS (5)
  - Anxiety [None]
  - Depression [None]
  - Crying [None]
  - Insomnia [None]
  - Product substitution issue [None]
